FAERS Safety Report 6471758-5 (Version None)
Quarter: 2009Q4

REPORT INFORMATION
  Report Type: 
  Country: None (occurrence: None)
  Receive Date: 20091203
  Receipt Date: 20080507
  Transmission Date: 20100525
  Serious: Yes (Disabling)
  Sender: FDA-Public Use
  Company Number: US-ELI_LILLY_AND_COMPANY-US200803003817

PATIENT
  Sex: Male

DRUGS (10)
  1. HUMALOG [Suspect]
     Dates: start: 20020101
  2. HUMALOG [Suspect]
     Dates: start: 20020101
  3. HUMULIN L [Suspect]
     Indication: DIABETES MELLITUS
  4. HUMULIN 70/30 [Suspect]
     Dates: end: 20020101
  5. LANTUS [Concomitant]
     Indication: DIABETES MELLITUS
     Route: 058
     Dates: start: 20020301
  6. ATENOLOL [Concomitant]
     Indication: BLOOD PRESSURE
     Route: 048
  7. LIPITOR [Concomitant]
     Indication: BLOOD CHOLESTEROL
     Route: 048
  8. PENTOXIFYLLINE [Concomitant]
     Route: 048
     Dates: start: 20040101
  9. FUROSEMIDE [Concomitant]
     Indication: BLOOD PRESSURE
     Route: 048
     Dates: start: 20070101
  10. HYDROCHLOROTHIAZIDE [Concomitant]
     Route: 048
     Dates: end: 20070701

REACTIONS (10)
  - AUTONOMIC NEUROPATHY [None]
  - DIABETIC NEPHROPATHY [None]
  - DIABETIC RETINOPATHY [None]
  - ERECTILE DYSFUNCTION [None]
  - HYPERLIPIDAEMIA [None]
  - HYPERTENSION [None]
  - HYPERTHYROIDISM [None]
  - HYPOGLYCAEMIA UNAWARENESS [None]
  - NEUROPATHY PERIPHERAL [None]
  - VISUAL ACUITY REDUCED [None]
